FAERS Safety Report 18298806 (Version 1)
Quarter: 2020Q3

REPORT INFORMATION
  Report Type: Spontaneous
  Country: SI (occurrence: SI)
  Receive Date: 20200922
  Receipt Date: 20200922
  Transmission Date: 20201103
  Serious: Yes (Other)
  Sender: FDA-Public Use
  Company Number: SI-SA-2020SA254643

PATIENT

DRUGS (2)
  1. JEVTANA [Suspect]
     Active Substance: CABAZITAXEL
     Dosage: UNK
     Dates: start: 202006
  2. JEVTANA [Suspect]
     Active Substance: CABAZITAXEL
     Indication: HORMONE-REFRACTORY PROSTATE CANCER
     Dosage: UNK
     Route: 065
     Dates: start: 20191208

REACTIONS (3)
  - Diarrhoea [Unknown]
  - Influenza [Unknown]
  - Pyelonephritis [Unknown]
